FAERS Safety Report 6783228-5 (Version None)
Quarter: 2010Q2

REPORT INFORMATION
  Report Type: 
  Country: None (occurrence: None)
  Receive Date: 20100622
  Receipt Date: 20100608
  Transmission Date: 20101027
  Serious: Yes (Death)
  Sender: FDA-Public Use
  Company Number: DE-PFIZER INC-2010076349

PATIENT
  Age: 79 Year
  Sex: Female

DRUGS (4)
  1. ARGATROBAN [Suspect]
     Indication: HEPARIN-INDUCED THROMBOCYTOPENIA
     Dosage: 176.5 MG (0.107 - 0.256 UG/KG/MIN)
     Route: 042
     Dates: start: 20100407, end: 20100414
  2. ARTERENOL [Concomitant]
     Dosage: 0.4 MG/ML - 8ML/HR
     Route: 065
     Dates: start: 20100401, end: 20100414
  3. SUPRARENIN [Concomitant]
     Dosage: (0.4 MG/ML - 6ML/HR)
     Route: 065
     Dates: start: 20100401, end: 20100414
  4. COROTROP [Concomitant]
     Dosage: (0.2 MG/ML - 6ML/HR)
     Route: 065
     Dates: start: 20100401, end: 20100411

REACTIONS (1)
  - INTESTINAL ISCHAEMIA [None]
